FAERS Safety Report 6327881-9 (Version None)
Quarter: 2009Q3

REPORT INFORMATION
  Report Type: 
  Country: None (occurrence: None)
  Receive Date: 20090824
  Receipt Date: 20090814
  Transmission Date: 20100115
  Serious: Yes (Other)
  Sender: FDA-Public Use
  Company Number: CERZ-1000753

PATIENT
  Sex: Female
  Weight: 56 kg

DRUGS (1)
  1. CEREZYME [Suspect]
     Indication: GAUCHER'S DISEASE
     Dosage: 36 U/KG, Q2W, INTRAVENOUS
     Route: 042
     Dates: start: 19970101, end: 20090101

REACTIONS (5)
  - CAESAREAN SECTION [None]
  - CHOLELITHIASIS [None]
  - DRUG EXPOSURE DURING PREGNANCY [None]
  - SPINAL COMPRESSION FRACTURE [None]
  - TWIN PREGNANCY [None]
